FAERS Safety Report 5874008-3 (Version None)
Quarter: 2008Q3

REPORT INFORMATION
  Report Type: 
  Country: None (occurrence: None)
  Receive Date: 20080908
  Receipt Date: 20080825
  Transmission Date: 20090109
  Serious: Yes (Hospitalization, Other)
  Sender: FDA-Public Use
  Company Number: US-ELI_LILLY_AND_COMPANY-US200808005509

PATIENT
  Age: 41 Year
  Sex: Male

DRUGS (3)
  1. FLUOXETINE HYDROCHLORIDE [Suspect]
     Indication: DEPRESSED MOOD
     Dosage: UNK, UNKNOWN
     Route: 065
  2. HALOPERIDOL [Concomitant]
     Dosage: UNK, UNKNOWN
     Route: 065
  3. CLOZAPINE [Concomitant]
     Dosage: 350 MG, DAILY (1/D)
     Route: 065

REACTIONS (3)
  - BRONCHOSPASM [None]
  - NEUROLEPTIC MALIGNANT SYNDROME [None]
  - PNEUMONIA [None]
